FAERS Safety Report 5814316-5 (Version None)
Quarter: 2008Q3

REPORT INFORMATION
  Report Type: 
  Country: None (occurrence: None)
  Receive Date: 20080715
  Receipt Date: 20080327
  Transmission Date: 20090109
  Serious: No
  Sender: FDA-Public Use
  Company Number: 268-032708

PATIENT
  Sex: Male

DRUGS (1)
  1. TRIPLE ANTIBIOTIC OINTMENT - [Suspect]
     Indication: THERAPEUTIC SKIN CARE TOPICAL

REACTIONS (1)
  - DYSPNOEA [None]
